FAERS Safety Report 11107412 (Version 2)
Quarter: 2015Q2

REPORT INFORMATION
  Report Type: Spontaneous
  Country: BR (occurrence: BR)
  Receive Date: 20150512
  Receipt Date: 20150525
  Transmission Date: 20150821
  Serious: Yes (Hospitalization, Other)
  Sender: FDA-Public Use
  Company Number: BR-JNJFOC-20150100406

PATIENT
  Age: 22 Year
  Sex: Female
  Weight: 46 kg

DRUGS (6)
  1. ALPRAZOLAM. [Concomitant]
     Active Substance: ALPRAZOLAM
     Indication: ANTIDEPRESSANT THERAPY
     Route: 065
  2. REMICADE [Suspect]
     Active Substance: INFLIXIMAB
     Indication: CROHN^S DISEASE
     Route: 042
     Dates: start: 20150313
  3. REMICADE [Suspect]
     Active Substance: INFLIXIMAB
     Indication: CROHN^S DISEASE
     Route: 042
     Dates: start: 20130108
  4. AZATHIOPRINE. [Concomitant]
     Active Substance: AZATHIOPRINE
     Indication: CROHN^S DISEASE
     Route: 065
  5. REMICADE [Suspect]
     Active Substance: INFLIXIMAB
     Indication: CROHN^S DISEASE
     Route: 042
     Dates: start: 20141126
  6. AMITRIPTYLINE [Suspect]
     Active Substance: AMITRIPTYLINE
     Indication: DEPRESSION
     Route: 065
     Dates: end: 20150410

REACTIONS (14)
  - Dengue fever [Recovering/Resolving]
  - Nephrolithiasis [Not Recovered/Not Resolved]
  - Haemorrhoidal haemorrhage [Recovering/Resolving]
  - Diarrhoea [Recovering/Resolving]
  - Urinary tract infection [Recovering/Resolving]
  - Pharyngitis [Recovering/Resolving]
  - Functional gastrointestinal disorder [Recovered/Resolved]
  - Rhinitis allergic [Not Recovered/Not Resolved]
  - Influenza [Recovering/Resolving]
  - Arthralgia [Recovering/Resolving]
  - Weight decreased [Unknown]
  - Ear infection [Not Recovered/Not Resolved]
  - Abdominal pain [Recovering/Resolving]
  - Insomnia [Recovering/Resolving]

NARRATIVE: CASE EVENT DATE: 201411
